FAERS Safety Report 20960069 (Version 1)
Quarter: 2022Q2

REPORT INFORMATION
  Report Type: Spontaneous
  Country: None (occurrence: GB)
  Receive Date: 20220615
  Receipt Date: 20220615
  Transmission Date: 20220721
  Serious: Yes (Hospitalization, Other)
  Sender: FDA-Public Use
  Company Number: GB-Oxford Pharmaceuticals, LLC-2129884

PATIENT
  Age: 37 Year
  Sex: Male

DRUGS (10)
  1. BACLOFEN [Suspect]
     Active Substance: BACLOFEN
     Indication: Deep brain stimulation
     Route: 037
  2. GABAPENTIN [Concomitant]
     Active Substance: GABAPENTIN
  3. AMITRIPTYLINE [Concomitant]
     Active Substance: AMITRIPTYLINE
  4. TRAMADOL [Concomitant]
     Active Substance: TRAMADOL
  5. MIRTAZAPINE [Concomitant]
     Active Substance: MIRTAZAPINE
  6. QUETIAPINE [Concomitant]
     Active Substance: QUETIAPINE
  7. ZOPICLONE [Concomitant]
     Active Substance: ZOPICLONE
  8. NAPROXEN [Concomitant]
     Active Substance: NAPROXEN
  9. MEFENAMIC ACID [Concomitant]
     Active Substance: MEFENAMIC ACID
  10. NICORETTE [Concomitant]
     Active Substance: NICOTINE

REACTIONS (4)
  - Brain stem syndrome [Recovered/Resolved]
  - Overdose [Recovered/Resolved]
  - Toxicity to various agents [Recovered/Resolved]
  - Generalised tonic-clonic seizure [Recovered/Resolved]
